FAERS Safety Report 4610953-4 (Version None)
Quarter: 2005Q2

REPORT INFORMATION
  Report Type: 
  Country: None (occurrence: None)
  Receive Date: 20050303
  Receipt Date: 20041027
  Transmission Date: 20051028
  Serious: No
  Sender: FDA-Public Use
  Company Number: 702360

PATIENT
  Age: 73 Year
  Sex: Female

DRUGS (1)
  1. AMEVIVE [Suspect]
     Indication: PSORIASIS
     Dosage: 15 MG;QW;IM
     Route: 030
     Dates: start: 20041001, end: 20041005

REACTIONS (3)
  - HYPERHIDROSIS [None]
  - INFLUENZA LIKE ILLNESS [None]
  - TREMOR [None]
